FAERS Safety Report 8341366-X (Version None)
Quarter: 2012Q2

REPORT INFORMATION
  Report Type: 
  Country: None (occurrence: None)
  Receive Date: 20120507
  Receipt Date: 20120501
  Transmission Date: 20120825
  Serious: Yes (Other)
  Sender: FDA-Public Use
  Company Number: US-JNJFOC-20120308327

PATIENT
  Sex: Female
  Weight: 22.68 kg

DRUGS (1)
  1. TOPAMAX [Suspect]
     Indication: CONVULSION
     Route: 048
     Dates: start: 20080101

REACTIONS (6)
  - ABNORMAL BEHAVIOUR [None]
  - DRUG DOSE OMISSION [None]
  - MUSCLE SPASMS [None]
  - POOR QUALITY DRUG ADMINISTERED [None]
  - INCORRECT DOSE ADMINISTERED [None]
  - CONVULSION [None]
